FAERS Safety Report 5815796-1 (Version None)
Quarter: 2008Q3

REPORT INFORMATION
  Report Type: 
  Country: None (occurrence: None)
  Receive Date: 20080721
  Receipt Date: 20080708
  Transmission Date: 20090109
  Serious: Yes (Other)
  Sender: FDA-Public Use
  Company Number: BR-BAYER-200815814LA

PATIENT
  Age: 23 Year
  Sex: Female

DRUGS (1)
  1. YASMIN [Suspect]
     Indication: ORAL CONTRACEPTION
     Route: 048
     Dates: start: 20070501

REACTIONS (3)
  - EYE MOVEMENT DISORDER [None]
  - INTRACRANIAL PRESSURE INCREASED [None]
  - NERVOUS SYSTEM DISORDER [None]
